FAERS Safety Report 24575866 (Version 4)
Quarter: 2025Q3

REPORT INFORMATION
  Report Type: Report from Study
  Country: US (occurrence: US)
  Receive Date: 20241104
  Receipt Date: 20250704
  Transmission Date: 20251020
  Serious: Yes (Hospitalization, Other)
  Sender: TAKEDA
  Company Number: US-TAKEDA-2024TUS110593

PATIENT
  Age: 70 Year
  Sex: Male
  Weight: 72.56 kg

DRUGS (3)
  1. GLASSIA [Suspect]
     Active Substance: .ALPHA.1-PROTEINASE INHIBITOR HUMAN
     Indication: Alpha-1 antitrypsin deficiency
  2. GLASSIA [Suspect]
     Active Substance: .ALPHA.1-PROTEINASE INHIBITOR HUMAN
     Dosage: 60 MILLIGRAM/KILOGRAM, 1/WEEK
     Dates: start: 20240724
  3. COVID-19 VACCINE NOS [Suspect]
     Active Substance: COVID-19 VACCINE
     Indication: Product used for unknown indication

REACTIONS (7)
  - Pneumonia [Unknown]
  - Bronchitis [Unknown]
  - Oxygen saturation decreased [Recovered/Resolved]
  - Asthenia [Unknown]
  - Sinusitis [Unknown]
  - Fatigue [Unknown]
  - Dyspnoea [Recovered/Resolved]
